FAERS Safety Report 5259612-8 (Version None)
Quarter: 2007Q1

REPORT INFORMATION
  Report Type: 
  Country: None (occurrence: None)
  Receive Date: 20070309
  Receipt Date: 20070301
  Transmission Date: 20070707
  Serious: Yes (Hospitalization)
  Sender: FDA-Public Use
  Company Number: US-JNJFOC-20070300845

PATIENT
  Sex: Female
  Weight: 71.22 kg

DRUGS (11)
  1. DURAGESIC-100 [Suspect]
     Dosage: 2 X 100UG/HR PATCHES
     Route: 062
  2. DURAGESIC-100 [Suspect]
     Indication: CANCER PAIN
     Route: 062
  3. FENTANYL TRANSDERMAL SYSTEM [Suspect]
     Indication: CANCER PAIN
     Dosage: 2 X 100UG/HR PATCHES
     Route: 062
  4. METHADONE HCL [Concomitant]
     Route: 048
  5. METHADONE HCL [Concomitant]
     Indication: PAIN
     Route: 048
  6. PREVACID [Concomitant]
     Indication: DYSPEPSIA
     Route: 048
  7. ACTIQ [Concomitant]
     Indication: BREAKTHROUGH PAIN
     Dosage: AS NEEDED
     Route: 048
  8. SOMA [Concomitant]
     Indication: MUSCLE SPASMS
     Route: 048
  9. VALIUM [Concomitant]
     Indication: ANXIETY
     Route: 048
  10. PERCOCET [Concomitant]
     Indication: BREAKTHROUGH PAIN
     Dosage: 10/325 MG 4 PER DAY AS NEEDED
     Route: 048
  11. UNKNOWN MEDICATION [Concomitant]
     Indication: SMOKING CESSATION THERAPY
     Route: 065

REACTIONS (6)
  - BLOOD CHOLESTEROL INCREASED [None]
  - BLOOD TRIGLYCERIDES INCREASED [None]
  - DRUG INEFFECTIVE [None]
  - GOITRE [None]
  - HYSTERECTOMY [None]
  - OOPHORECTOMY [None]
